FAERS Safety Report 7249709-5 (Version None)
Quarter: 2011Q1

REPORT INFORMATION
  Report Type: 
  Country: None (occurrence: None)
  Receive Date: 20110121
  Receipt Date: 20110121
  Transmission Date: 20110831
  Serious: Yes (Hospitalization)
  Sender: FDA-Public Use
  Company Number: None

PATIENT
  Sex: Female
  Weight: 95 kg

DRUGS (3)
  1. TAXOTERE [Suspect]
     Dosage: 148 MG
     Dates: end: 20101215
  2. HERCEPTIN [Suspect]
     Dosage: 186 MG
     Dates: end: 20101215
  3. CARBOPLATIN [Suspect]
     Dosage: 850 MG
     Dates: end: 20101215

REACTIONS (1)
  - PYREXIA [None]
